FAERS Safety Report 24069970 (Version 1)
Quarter: 2024Q3

REPORT INFORMATION
  Report Type: Report from Study
  Country: CN (occurrence: CN)
  Receive Date: 20240710
  Receipt Date: 20240710
  Transmission Date: 20241017
  Serious: No
  Sender: ROCHE
  Company Number: CN-ROCHE-3456882

PATIENT
  Age: 73 Year
  Sex: Female

DRUGS (1)
  1. ALECENSA [Suspect]
     Active Substance: ALECTINIB HYDROCHLORIDE
     Indication: Non-small cell lung cancer metastatic
     Dosage: 224 CAPSULES/BOX
     Route: 048
     Dates: start: 20231019

REACTIONS (3)
  - Oedema peripheral [Unknown]
  - Hepatic function abnormal [Unknown]
  - Glomerular filtration rate decreased [Unknown]
